FAERS Safety Report 10730231 (Version 1)
Quarter: 2015Q1

REPORT INFORMATION
  Report Type: Spontaneous
  Country: US (occurrence: None)
  Receive Date: 20150121
  Receipt Date: 20150121
  Transmission Date: 20150721
  Serious: Yes (Other)
  Sender: FDA-Public Use
  Company Number: None

PATIENT
  Age: 62 Year
  Sex: Female
  Weight: 84.82 kg

DRUGS (1)
  1. BUPROPION 100 MG MYLAN [Suspect]
     Active Substance: BUPROPION
     Indication: DEPRESSION
     Dosage: 2 PILLS AM 1 PILL BEDTIME  TWICE DAILY TAKEN BY MOUTH
     Route: 048
     Dates: start: 20141215, end: 20150117

REACTIONS (26)
  - Restlessness [None]
  - Oropharyngeal pain [None]
  - Anxiety [None]
  - Irritability [None]
  - Headache [None]
  - Nervousness [None]
  - Dysphonia [None]
  - Lip swelling [None]
  - Pollakiuria [None]
  - Confusional state [None]
  - Depression [None]
  - Dizziness [None]
  - Vision blurred [None]
  - Decreased appetite [None]
  - Mental disorder [None]
  - Heart rate increased [None]
  - Disturbance in attention [None]
  - Swelling face [None]
  - Constipation [None]
  - Affective disorder [None]
  - Dry mouth [None]
  - Weight decreased [None]
  - Insomnia [None]
  - Hearing impaired [None]
  - Abnormal behaviour [None]
  - Arthralgia [None]

NARRATIVE: CASE EVENT DATE: 20141231
